FAERS Safety Report 17467756 (Version 1)
Quarter: 2020Q1

REPORT INFORMATION
  Report Type: Spontaneous
  Country: US (occurrence: US)
  Receive Date: 20200226
  Receipt Date: 20200226
  Transmission Date: 20200409
  Serious: Yes (Life-Threatening, Hospitalization)
  Sender: FDA-Public Use
  Company Number: None

PATIENT
  Age: 31 Year
  Sex: Female
  Weight: 102.2 kg

DRUGS (1)
  1. XOFLUZA [Suspect]
     Active Substance: BALOXAVIR MARBOXIL
     Indication: INFLUENZA
     Dosage: ?          OTHER FREQUENCY:ONCE;?
     Route: 048
     Dates: start: 20200214, end: 20200214

REACTIONS (12)
  - Leukocytosis [None]
  - Acute kidney injury [None]
  - Liver injury [None]
  - Purpura [None]
  - Blood lactic acid [None]
  - Toxic shock syndrome [None]
  - Vasculitis [None]
  - Disseminated intravascular coagulation [None]
  - Strawberry tongue [None]
  - Angiopathy [None]
  - Rash [None]
  - Dermatitis exfoliative generalised [None]

NARRATIVE: CASE EVENT DATE: 20200215
